FAERS Safety Report 9204357 (Version 1)
Quarter: 2013Q1

REPORT INFORMATION
  Report Type: Spontaneous
  Country: US (occurrence: None)
  Receive Date: 20130329
  Receipt Date: 20130329
  Transmission Date: 20140127
  Serious: Yes (Other)
  Sender: FDA-Public Use
  Company Number: UTC-030612

PATIENT
  Age: 27 Year
  Sex: Female
  Weight: 43.18 kg

DRUGS (3)
  1. TYVASO [Suspect]
     Indication: COR PULMONALE CHRONIC
     Dosage: 72 MCG (18 MCG, 4 IN 1 D) , INHALATION
     Route: 055
     Dates: start: 20130318
  2. ADCIRCA (TADALAFIL-) [Concomitant]
  3. LETAIRIS (AMBRISENTAN) (TABLET) (AMBRISENTAN) [Concomitant]

REACTIONS (5)
  - Throat tightness [None]
  - Hypoaesthesia oral [None]
  - Anxiety [None]
  - Cough [None]
  - Nausea [None]
